FAERS Safety Report 13264496 (Version 1)
Quarter: 2017Q1

REPORT INFORMATION
  Report Type: Spontaneous
  Country: US (occurrence: US)
  Receive Date: 20170223
  Receipt Date: 20170223
  Transmission Date: 20170428
  Serious: No
  Sender: FDA-Public Use
  Company Number: US-LANTHEUS-LMI-2016-04117

PATIENT
  Age: 50 Year
  Sex: Female
  Weight: 120 kg

DRUGS (2)
  1. PAXIL [Concomitant]
     Active Substance: PAROXETINE HYDROCHLORIDE
     Indication: PRODUCT USED FOR UNKNOWN INDICATION
     Route: 065
  2. DEFINITY [Suspect]
     Active Substance: PERFLUTREN
     Indication: STRESS ECHOCARDIOGRAM
     Dosage: 4 ML (1.5 ML DEFINITY PREPARED IN 8 ML DILUENT)
     Route: 040
     Dates: start: 20161010, end: 20161010

REACTIONS (4)
  - Back pain [Recovered/Resolved]
  - Dysphonia [Recovered/Resolved]
  - Throat tightness [Recovered/Resolved]
  - Hot flush [Recovered/Resolved]

NARRATIVE: CASE EVENT DATE: 20161010
